FAERS Safety Report 5270377-6 (Version None)
Quarter: 2007Q1

REPORT INFORMATION
  Report Type: 
  Country: None (occurrence: None)
  Receive Date: 20070320
  Receipt Date: 20070308
  Transmission Date: 20070707
  Serious: Yes (Life-Threatening, Hospitalization)
  Sender: FDA-Public Use
  Company Number: ES-PFIZER INC-2007018159

PATIENT
  Age: 39 Year
  Sex: Male

DRUGS (5)
  1. NEURONTIN [Suspect]
     Indication: NEUROMYELITIS OPTICA
     Route: 048
     Dates: start: 20060701, end: 20070116
  2. AZATHIOPRINE SODIUM [Suspect]
     Indication: NEUROMYELITIS OPTICA
     Route: 048
     Dates: start: 20060803, end: 20070116
  3. TEGRETOL [Suspect]
     Indication: NEUROMYELITIS OPTICA
     Route: 048
     Dates: start: 20040804, end: 20070116
  4. ALPRAZOLAM [Concomitant]
     Indication: NEUROSIS
     Route: 048
     Dates: start: 20050310, end: 20070116
  5. METAMIZOLE [Concomitant]
     Route: 048

REACTIONS (1)
  - PANCYTOPENIA [None]
